FAERS Safety Report 4908920-6 (Version None)
Quarter: 2006Q1

REPORT INFORMATION
  Report Type: 
  Country: None (occurrence: None)
  Receive Date: 20060209
  Receipt Date: 20060130
  Transmission Date: 20060701
  Serious: Yes (Other)
  Sender: FDA-Public Use
  Company Number: 2006016606

PATIENT
  Sex: Female
  Weight: 63.5036 kg

DRUGS (11)
  1. NORVASC [Suspect]
     Indication: HYPERTENSION
     Dosage: SEE IMAGE
     Route: 048
     Dates: end: 20050101
  2. LIPITOR [Suspect]
     Indication: BLOOD CHOLESTEROL INCREASED
     Dates: start: 20050101
  3. HYZAAR (HYDROCHLOROTHIAZIDE, LOSARTAN POSTASSIUM) [Concomitant]
  4. ALLEGRA [Concomitant]
  5. SINGULAIR [Concomitant]
  6. FLOVENT [Concomitant]
  7. BECONAW (BECLOMETASONE DIPROPRIONATE) [Concomitant]
  8. RHINOCORT [Concomitant]
  9. COMBIVENT (IPRATROPOIM BROMIDE, SALBUTAMOL SULFATE) [Concomitant]
  10. ADVAIR DISKUS 100/50 [Concomitant]
  11. SEREVENT [Concomitant]

REACTIONS (6)
  - ACCIDENT [None]
  - ASTHMA [None]
  - BLOOD CHOLESTEROL INCREASED [None]
  - DRUG INEFFECTIVE [None]
  - PAIN [None]
  - SPINAL FUSION SURGERY [None]
